FAERS Safety Report 19875818 (Version 11)
Quarter: 2022Q1

REPORT INFORMATION
  Report Type: Spontaneous
  Country: JP (occurrence: JP)
  Receive Date: 20210924
  Receipt Date: 20220331
  Transmission Date: 20220423
  Serious: Yes (Hospitalization, Other)
  Sender: FDA-Public Use
  Company Number: JP-SAKK-00761448

PATIENT
  Sex: Male
  Weight: 100 kg

DRUGS (7)
  1. AMARYL [Suspect]
     Active Substance: GLIMEPIRIDE
     Indication: Type 2 diabetes mellitus
     Dosage: UNK
     Route: 048
  2. AMARYL [Suspect]
     Active Substance: GLIMEPIRIDE
     Dosage: STARTED TO BE TAKEN AT 1 MG FOLLOWED BY DOSE INCREASE TO 6 MG
     Route: 048
     Dates: end: 2006
  3. AMARYL [Suspect]
     Active Substance: GLIMEPIRIDE
     Dosage: 2 DF, PC
     Route: 048
     Dates: end: 2006
  4. AMARYL [Suspect]
     Active Substance: GLIMEPIRIDE
     Dosage: 6 MG
     Route: 048
  5. INSULIN GLARGINE [Concomitant]
     Active Substance: INSULIN GLARGINE
     Indication: Type 2 diabetes mellitus
     Dosage: ADMINISTERED ONCE
     Route: 065
     Dates: start: 2006
  6. BASEN 1 [Concomitant]
     Indication: Type 2 diabetes mellitus
     Dosage: UNK
     Route: 048
     Dates: start: 2006
  7. LITHIUM CARBONATE [Concomitant]
     Active Substance: LITHIUM CARBONATE
     Indication: Persistent depressive disorder
     Route: 065

REACTIONS (13)
  - Hyperglycaemia [Recovered/Resolved]
  - Depressed level of consciousness [Recovered/Resolved]
  - Diabetic coma [Recovered/Resolved]
  - Vomiting [Recovered/Resolved]
  - Loss of consciousness [Recovered/Resolved]
  - Fall [Recovered/Resolved]
  - Dizziness [Recovered/Resolved]
  - Hyperlipidaemia [Unknown]
  - Dysarthria [Unknown]
  - Muscular weakness [Unknown]
  - Weight increased [Recovering/Resolving]
  - Hypoglycaemia [Unknown]
  - Tremor [Unknown]

NARRATIVE: CASE EVENT DATE: 20060101
